FAERS Safety Report 6659943-0 (Version None)
Quarter: 2010Q1

REPORT INFORMATION
  Report Type: 
  Country: None (occurrence: None)
  Receive Date: 20100330
  Receipt Date: 20100324
  Transmission Date: 20100710
  Serious: Yes (Death, Hospitalization, Other)
  Sender: FDA-Public Use
  Company Number: US-BRISTOL-MYERS SQUIBB COMPANY-15034150

PATIENT
  Age: 61 Year
  Sex: Male

DRUGS (17)
  1. TAXOL [Suspect]
  2. CARBOPLATIN [Suspect]
  3. PIRESPA [Suspect]
     Indication: IDIOPATHIC PULMONARY FIBROSIS
     Dosage: STAR'D WITH 200MG TID FOLLOWED BY 200MG/D FROM 30MAR09;DOSE INCR'ED 400MG/D FROM 15JUN09 TO 24AUG09
     Route: 048
     Dates: start: 20090316, end: 20090824
  4. PREDNISOLONE [Concomitant]
  5. NEORAL [Concomitant]
  6. NORVASC [Concomitant]
  7. NU-LOTAN [Concomitant]
  8. FLIVAS [Concomitant]
  9. FAMOTIDINE [Concomitant]
  10. LIPIDIL [Concomitant]
  11. SELBEX [Concomitant]
  12. KIPRESS [Concomitant]
  13. ALOSENN [Concomitant]
  14. MAGLAX [Concomitant]
  15. ACTONEL [Concomitant]
  16. NOVORAPID [Concomitant]
  17. LANTUS [Concomitant]

REACTIONS (3)
  - IDIOPATHIC PULMONARY FIBROSIS [None]
  - PNEUMONITIS [None]
  - RASH [None]
